FAERS Safety Report 10239228 (Version 2)
Quarter: 2014Q3

REPORT INFORMATION
  Report Type: Report from Study
  Country: CN (occurrence: CN)
  Receive Date: 20140616
  Receipt Date: 20140701
  Transmission Date: 20150326
  Serious: Yes (Other)
  Sender: FDA-Public Use
  Company Number: CN-BAYER-2014-088679

PATIENT
  Age: 15 Year
  Sex: Male

DRUGS (1)
  1. ACETYLSALICYLIC ACID (} 100 MG) [Suspect]
     Active Substance: ASPIRIN
     Indication: CAROTID ARTERY DISSECTION
     Dosage: 100 MG/DAY

REACTIONS (2)
  - Drug ineffective [None]
  - Cerebrovascular accident [None]
